FAERS Safety Report 9696805 (Version 2)
Quarter: 2014Q1

REPORT INFORMATION
  Report Type: Spontaneous
  Country: US (occurrence: US)
  Receive Date: 20131119
  Receipt Date: 20140120
  Transmission Date: 20141002
  Serious: No
  Sender: FDA-Public Use
  Company Number: US-GILEAD-2013-0087755

PATIENT
  Sex: Female

DRUGS (3)
  1. LETAIRIS [Suspect]
     Indication: SJOGREN^S SYNDROME
     Dosage: 5 MG, QD
     Dates: start: 20130528
  2. LETAIRIS [Suspect]
     Indication: PULMONARY HYPERTENSION
  3. REVATIO [Concomitant]

REACTIONS (2)
  - Presyncope [Unknown]
  - Dizziness [Unknown]
